FAERS Safety Report 19232041 (Version 2)
Quarter: 2021Q2

REPORT INFORMATION
  Report Type: Spontaneous
  Country: US (occurrence: US)
  Receive Date: 20210507
  Receipt Date: 20210614
  Transmission Date: 20210717
  Serious: No
  Sender: FDA-Public Use
  Company Number: US-VERTEX PHARMACEUTICALS-2021-005365

PATIENT
  Age: 29 Year
  Sex: Female

DRUGS (16)
  1. ALBUTEROL [SALBUTAMOL] [Concomitant]
     Active Substance: ALBUTEROL
  2. LINACLOTIDE [Concomitant]
     Active Substance: LINACLOTIDE
  3. TRIKAFTA [Suspect]
     Active Substance: ELEXACAFTOR\IVACAFTOR\TEZACAFTOR
     Dosage: DOSE REDUCTION
     Route: 048
     Dates: start: 20200824, end: 2020
  4. TRIKAFTA [Suspect]
     Active Substance: ELEXACAFTOR\IVACAFTOR\TEZACAFTOR
     Dosage: ALTERNATING 2 ORANGE TABS ONE DAY FOLLOWED BY 1 BLUE TAB THE NEXT DAY
     Route: 048
     Dates: start: 2021
  5. OLOPATADINE. [Concomitant]
     Active Substance: OLOPATADINE
     Dosage: NASAL SPRAY
     Route: 045
  6. TRIKAFTA [Suspect]
     Active Substance: ELEXACAFTOR\IVACAFTOR\TEZACAFTOR
     Dosage: DOSE REDUCTION
     Route: 048
     Dates: start: 20201021, end: 20210118
  7. CLONIDINE. [Concomitant]
     Active Substance: CLONIDINE
  8. MUCOMYST [Concomitant]
     Active Substance: ACETYLCYSTEINE
  9. DULOXETINE. [Concomitant]
     Active Substance: DULOXETINE
  10. TRIKAFTA [Suspect]
     Active Substance: ELEXACAFTOR\IVACAFTOR\TEZACAFTOR
     Dosage: UNK
     Route: 048
     Dates: start: 20210128, end: 202103
  11. CREON [Concomitant]
     Active Substance: PANCRELIPASE AMYLASE\PANCRELIPASE LIPASE\PANCRELIPASE PROTEASE
  12. PULMOZYME [Concomitant]
     Active Substance: DORNASE ALFA
  13. HYPERTONIC SALINE SOLUTION [Concomitant]
     Active Substance: SODIUM CHLORIDE
  14. SYMBICORT [Concomitant]
     Active Substance: BUDESONIDE\FORMOTEROL FUMARATE DIHYDRATE
  15. MONTELUKAST [Concomitant]
     Active Substance: MONTELUKAST SODIUM
  16. TRIKAFTA [Suspect]
     Active Substance: ELEXACAFTOR\IVACAFTOR\TEZACAFTOR
     Indication: CYSTIC FIBROSIS
     Dosage: (100MG ELEXACAFTOR/50MG TEZACAFTOR/75MG IVACAFTOR; UNKNOWN DOSAGE
     Route: 048
     Dates: start: 20191127, end: 2020

REACTIONS (4)
  - Chest pain [Unknown]
  - Sinus pain [Unknown]
  - Alopecia [Recovering/Resolving]
  - Acne [Recovering/Resolving]

NARRATIVE: CASE EVENT DATE: 2021
